FAERS Safety Report 17928257 (Version 1)
Quarter: 2020Q2

REPORT INFORMATION
  Report Type: Spontaneous
  Country: ES (occurrence: ES)
  Receive Date: 20200623
  Receipt Date: 20200623
  Transmission Date: 20200714
  Serious: Yes (Hospitalization)
  Sender: FDA-Public Use
  Company Number: ES-TEVA-2020-ES-1789134

PATIENT
  Age: 79 Year
  Sex: Female

DRUGS (11)
  1. FENTANILO 12 MICROGRAMOS/H PARCHE TRANSDERMICO [Suspect]
     Active Substance: FENTANYL
     Indication: NEOPLASM MALIGNANT
     Dosage: 1 DOSAGE FORMS
     Route: 062
     Dates: start: 20190307, end: 20191024
  2. LORAZEPAM 1 MG COMPRIMIDO [Concomitant]
     Active Substance: LORAZEPAM
  3. OMEPRAZOL 20 MG CAPSULA [Concomitant]
  4. CARDYL 20 MG COMPRIMIDOS RECUBIERTOS CON PELICULA, 28 COMPRIMIDOS [Concomitant]
  5. ENOXAPARINA ROVI 8.000 UI (80 MG)/0,8 ML SOLUCION INYECTABLE EN JERING [Concomitant]
  6. METOCLOPRAMIDA 10 MG COMPRIMIDO [Concomitant]
  7. PARACETAMOL 1.000 MG COMPRIMIDO [Concomitant]
  8. ENALAPRIL 5 MG COMPRIMIDO [Concomitant]
     Active Substance: ENALAPRIL
  9. IDEOS 500 MG/400 UI COMPRIMIDOS MASTICABLES  , 60 COMPRIMIDOS [Concomitant]
  10. DOXICICLINA 100 MG CAPSULA [Concomitant]
  11. BISOPROLOL 2,5 MG COMPRIMIDO [Concomitant]
     Active Substance: BISOPROLOL

REACTIONS (3)
  - Self-medication [Recovered/Resolved]
  - Hypersomnia [Recovered/Resolved]
  - Constipation [Recovered/Resolved]

NARRATIVE: CASE EVENT DATE: 20191022
